FAERS Safety Report 7528769-8 (Version None)
Quarter: 2011Q2

REPORT INFORMATION
  Report Type: 
  Country: None (occurrence: None)
  Receive Date: 20110607
  Receipt Date: 20101102
  Transmission Date: 20111010
  Serious: No
  Sender: FDA-Public Use
  Company Number: US-ASTRAZENECA-2010SE52805

PATIENT
  Age: 57 Year
  Sex: Male

DRUGS (3)
  1. BLOOD PRESSURE MEDICATION [Concomitant]
     Dosage: UNKNOWN
  2. COUMADIN [Interacting]
     Route: 065
  3. PRILOSEC OTC [Suspect]
     Route: 050
     Dates: start: 20100901, end: 20100911

REACTIONS (2)
  - LABELLED DRUG-DRUG INTERACTION MEDICATION ERROR [None]
  - HEADACHE [None]
